FAERS Safety Report 17099261 (Version 1)
Quarter: 2019Q4

REPORT INFORMATION
  Report Type: Spontaneous
  Country: US (occurrence: US)
  Receive Date: 20191130
  Receipt Date: 20191130
  Transmission Date: 20200122
  Serious: No
  Sender: FDA-Public Use
  Company Number: None

PATIENT
  Age: 54 Year
  Sex: Female
  Weight: 75.15 kg

DRUGS (4)
  1. DULOXETINE. [Suspect]
     Active Substance: DULOXETINE
     Indication: MULTIPLE SCLEROSIS
     Route: 048
     Dates: start: 20190102, end: 20191118
  2. DULOXETINE. [Suspect]
     Active Substance: DULOXETINE
     Indication: DEPRESSION
     Route: 048
     Dates: start: 20190102, end: 20191118
  3. CLONAZEPAM. [Concomitant]
     Active Substance: CLONAZEPAM
  4. ELAVIL [Concomitant]
     Active Substance: AMITRIPTYLINE HYDROCHLORIDE

REACTIONS (2)
  - Influenza like illness [None]
  - Neuropathy peripheral [None]

NARRATIVE: CASE EVENT DATE: 20191118
